FAERS Safety Report 8841917 (Version 1)
Quarter: 2012Q4

REPORT INFORMATION
  Report Type: Spontaneous
  Country: US (occurrence: None)
  Receive Date: 20121015
  Receipt Date: 20121015
  Transmission Date: 20130627
  Serious: No
  Sender: FDA-Public Use
  Company Number: None

PATIENT
  Age: 85 Year
  Sex: Female

DRUGS (7)
  1. REVLIMID [Suspect]
     Indication: MULTIPLE MYELOMA
     Dosage: Revlimid 15 every other day orally
     Route: 048
     Dates: start: 201203, end: 201205
  2. IPRATROPIUM/ALBUTEROL [Concomitant]
  3. CLONIDINE [Concomitant]
  4. LABETALOL [Concomitant]
  5. FLUOXETINE [Concomitant]
  6. AMLODIPINE [Concomitant]
  7. ENALAPRIL [Concomitant]

REACTIONS (6)
  - Hypoaesthesia [None]
  - Dizziness [None]
  - Dysgeusia [None]
  - Rash [None]
  - Neuropathy peripheral [None]
  - No therapeutic response [None]
